FAERS Safety Report 9385960 (Version 1)
Quarter: 2013Q3

REPORT INFORMATION
  Report Type: Spontaneous
  Country: GB (occurrence: GB)
  Receive Date: 20130705
  Receipt Date: 20130705
  Transmission Date: 20140515
  Serious: Yes (Hospitalization)
  Sender: FDA-Public Use
  Company Number: GB-ASTRAZENECA-2013SE49172

PATIENT
  Age: 43 Year
  Sex: Male
  Weight: 100 kg

DRUGS (3)
  1. TICAGRELOR [Suspect]
     Route: 065
     Dates: start: 20130608, end: 20130611
  2. ATORVASTATIN [Suspect]
     Route: 065
     Dates: end: 20130611
  3. RAMIPRIL [Concomitant]

REACTIONS (2)
  - Renal failure acute [Unknown]
  - Rhabdomyolysis [Unknown]
